FAERS Safety Report 10709737 (Version 1)
Quarter: 2015Q1

REPORT INFORMATION
  Report Type: Spontaneous
  Country: US (occurrence: None)
  Receive Date: 20150113
  Receipt Date: 20150113
  Transmission Date: 20150721
  Serious: No
  Sender: FDA-Public Use
  Company Number: None

PATIENT
  Age: 49 Year
  Sex: Female

DRUGS (1)
  1. SIMPONI [Suspect]
     Active Substance: GOLIMUMAB
     Indication: ILL-DEFINED DISORDER
     Route: 058
     Dates: start: 20141124, end: 20141224

REACTIONS (1)
  - Migraine [None]

NARRATIVE: CASE EVENT DATE: 20141125
